FAERS Safety Report 20889957 (Version 5)
Quarter: 2023Q2

REPORT INFORMATION
  Report Type: Report from Study
  Country: EG (occurrence: EG)
  Receive Date: 20220530
  Receipt Date: 20230428
  Transmission Date: 20230722
  Serious: Yes (Congenital Anomaly)
  Sender: FDA-Public Use
  Company Number: EG-NOVARTISPH-NVSC2022EG121519

PATIENT
  Sex: Male
  Weight: 3.2 kg

DRUGS (2)
  1. GILENYA [Suspect]
     Active Substance: FINGOLIMOD HYDROCHLORIDE
     Indication: Foetal exposure during pregnancy
     Dosage: MATERNAL DOSE: 0.5 MG, QD
     Route: 064
     Dates: start: 202011, end: 202105
  2. CALCIUM [Concomitant]
     Active Substance: CALCIUM
     Indication: Foetal exposure during pregnancy
     Dosage: MATERNAL DOSE: 2 DOSAGE FORM, QD
     Route: 064

REACTIONS (2)
  - Talipes [Unknown]
  - Foetal exposure during pregnancy [Unknown]
